FAERS Safety Report 4687700-3 (Version None)
Quarter: 2005Q2

REPORT INFORMATION
  Report Type: 
  Country: None (occurrence: None)
  Receive Date: 20050610
  Receipt Date: 19921120
  Transmission Date: 20051028
  Serious: Yes (Death, Other)
  Sender: FDA-Public Use
  Company Number: 199203041HAG

PATIENT
  Age: 77 Year
  Sex: Male

DRUGS (6)
  1. FRUSEMIDE [Suspect]
     Indication: CARDIAC FAILURE CONGESTIVE
     Dates: start: 19870101
  2. NITROGLYCERIN [Suspect]
     Indication: CARDIAC FAILURE CONGESTIVE
     Dates: start: 19870101
  3. DIGOXIN [Suspect]
     Indication: CARDIAC FAILURE CONGESTIVE
     Dates: start: 19870101
  4. ASPIRIN [Suspect]
     Indication: CARDIAC FAILURE CONGESTIVE
     Dates: start: 19870101
  5. SPAN-K [Suspect]
     Indication: CARDIAC FAILURE CONGESTIVE
     Dosage: DOSE UNIT: UNITS
     Dates: start: 19870101
  6. AMIODARONE HYDROCHLORIDE [Suspect]
     Indication: ARRHYTHMIA
     Dates: start: 19900901

REACTIONS (2)
  - PULMONARY FIBROSIS [None]
  - PULMONARY OEDEMA [None]
